FAERS Safety Report 7981938-5 (Version None)
Quarter: 2011Q4

REPORT INFORMATION
  Report Type: 
  Country: None (occurrence: None)
  Receive Date: 20111212
  Receipt Date: 20111202
  Transmission Date: 20120403
  Serious: Yes (Other)
  Sender: FDA-Public Use
  Company Number: 2011SP045546

PATIENT
  Age: 43 Year
  Sex: Male

DRUGS (4)
  1. BENADRYL [Concomitant]
  2. SAPHRIS [Suspect]
     Indication: SCHIZOPHRENIA
     Dosage: 5 MG;HS;SL, 10 MG;SL, 15MG;HS;SL, 10MG;BID;SL, 5MG;QD;SL, SL
     Route: 060
     Dates: start: 20110419
  3. SAPHRIS [Suspect]
     Indication: SCHIZOPHRENIA
     Dosage: 5 MG;HS;SL, 10 MG;SL, 15MG;HS;SL, 10MG;BID;SL, 5MG;QD;SL, SL
     Route: 060
     Dates: end: 20110926
  4. SAPHRIS [Suspect]
     Indication: SCHIZOPHRENIA
     Dosage: 5 MG;HS;SL, 10 MG;SL, 15MG;HS;SL, 10MG;BID;SL, 5MG;QD;SL, SL
     Route: 060
     Dates: start: 20111105

REACTIONS (7)
  - TREMOR [None]
  - DYSPHAGIA [None]
  - OESOPHAGEAL HYPOMOTILITY [None]
  - SALIVARY HYPERSECRETION [None]
  - SPEECH DISORDER [None]
  - DROOLING [None]
  - SWOLLEN TONGUE [None]
